FAERS Safety Report 21964503 (Version 1)
Quarter: 2023Q1

REPORT INFORMATION
  Report Type: Spontaneous
  Country: US (occurrence: None)
  Receive Date: 20230207
  Receipt Date: 20230207
  Transmission Date: 20230417
  Serious: No
  Sender: FDA-Public Use
  Company Number: None

PATIENT
  Age: 42 Year
  Sex: Female

DRUGS (1)
  1. BOTOX [Suspect]
     Active Substance: ONABOTULINUMTOXINA
     Dosage: 300 OTHER INTRAMUSCULAR
     Route: 030

REACTIONS (2)
  - Cerebrospinal fluid leakage [None]
  - Seizure [None]

NARRATIVE: CASE EVENT DATE: 20230207
